FAERS Safety Report 20568002 (Version 5)
Quarter: 2022Q2

REPORT INFORMATION
  Report Type: Report from Study
  Country: FR (occurrence: FR)
  Receive Date: 20220308
  Receipt Date: 20220603
  Transmission Date: 20220721
  Serious: Yes (Hospitalization, Other)
  Sender: FDA-Public Use
  Company Number: FR-GILEAD-2022-0568035

PATIENT
  Age: 37 Year
  Sex: Female

DRUGS (2)
  1. SACITUZUMAB GOVITECAN [Suspect]
     Active Substance: SACITUZUMAB GOVITECAN
     Indication: Triple negative breast cancer
     Dosage: UNK
     Route: 065
     Dates: start: 2021
  2. SACITUZUMAB GOVITECAN [Suspect]
     Active Substance: SACITUZUMAB GOVITECAN
     Dosage: IN 7TH LINE OF TREATMENT
     Route: 065
     Dates: start: 2021

REACTIONS (2)
  - Organising pneumonia [Recovered/Resolved]
  - Toxicity to various agents [Unknown]
